FAERS Safety Report 5085415-3 (Version None)
Quarter: 2006Q3

REPORT INFORMATION
  Report Type: 
  Country: None (occurrence: None)
  Receive Date: 20060816
  Receipt Date: 20060803
  Transmission Date: 20061208
  Serious: Yes (Death)
  Sender: FDA-Public Use
  Company Number: 2005JP002492

PATIENT
  Age: 61 Year
  Sex: Male

DRUGS (5)
  1. FUNGUARD (MICAFUNGIN) INJECTION [Suspect]
     Dosage: 150 MG, IV NOS
     Route: 042
     Dates: start: 20051122, end: 20051220
  2. PACIL [Concomitant]
  3. ZOVIRAX [Concomitant]
  4. NEUPOGEN [Concomitant]
  5. DIOVAN [Concomitant]

REACTIONS (1)
  - LIVER DISORDER [None]
